FAERS Safety Report 21517285 (Version 1)
Quarter: 2022Q4

REPORT INFORMATION
  Report Type: Spontaneous
  Country: US (occurrence: US)
  Receive Date: 20221028
  Receipt Date: 20221028
  Transmission Date: 20230113
  Serious: Yes (Hospitalization, Other)
  Sender: FDA-Public Use
  Company Number: US-LUPIN PHARMACEUTICALS INC.-2022-12524

PATIENT
  Age: 65 Year
  Sex: Male

DRUGS (9)
  1. ZOLPIDEM [Suspect]
     Active Substance: ZOLPIDEM TARTRATE
     Indication: Product used for unknown indication
     Dosage: UNK
     Route: 065
  2. ARSENIC TRIOXIDE [Suspect]
     Active Substance: ARSENIC TRIOXIDE
     Indication: Acute promyelocytic leukaemia
     Dosage: UNK UNK, QD, 0.15 MG/KG/DOSE; INDUCTION THERAPY
     Route: 042
  3. ARSENIC TRIOXIDE [Suspect]
     Active Substance: ARSENIC TRIOXIDE
     Dosage: UNK CONSOLIDATION THERAPY
     Route: 065
  4. ARSENIC TRIOXIDE [Suspect]
     Active Substance: ARSENIC TRIOXIDE
     Dosage: UNK UNK, QOD
     Route: 065
  5. ARSENIC TRIOXIDE [Suspect]
     Active Substance: ARSENIC TRIOXIDE
     Dosage: UNK UNK, QD RE-ESCALATED TO DAILY DOSING BY DAY 29
     Route: 065
  6. ONDANSETRON [Suspect]
     Active Substance: ONDANSETRON
     Indication: Product used for unknown indication
     Dosage: UNK
     Route: 065
  7. TRETINOIN [Concomitant]
     Active Substance: TRETINOIN
     Indication: Acute promyelocytic leukaemia
     Dosage: UNK UNK, BID,22.5 MG/M2/DOSE; INDUCTION THERAPY
     Route: 048
  8. TRETINOIN [Concomitant]
     Active Substance: TRETINOIN
     Dosage: UNK, CONSOLIDATION THERAPY
     Route: 065
  9. PREDNISONE [Concomitant]
     Active Substance: PREDNISONE
     Indication: Prophylaxis
     Dosage: 0.5 MILLIGRAM/KILOGRAM, QD
     Route: 048

REACTIONS (1)
  - Electrocardiogram QT prolonged [Unknown]
